FAERS Safety Report 5519082-9 (Version None)
Quarter: 2007Q4

REPORT INFORMATION
  Report Type: 
  Country: None (occurrence: None)
  Receive Date: 20071116
  Receipt Date: 20071106
  Transmission Date: 20080405
  Serious: Yes (Other)
  Sender: FDA-Public Use
  Company Number: US-JNJFOC-20071102270

PATIENT
  Sex: Female
  Weight: 181.44 kg

DRUGS (7)
  1. FENTANYL TRANSDERMAL SYSTEM [Suspect]
     Route: 062
  2. FENTANYL TRANSDERMAL SYSTEM [Suspect]
     Route: 062
  3. FENTANYL TRANSDERMAL SYSTEM [Suspect]
     Indication: BACK PAIN
     Route: 062
  4. FENTANYL TRANSDERMAL SYSTEM [Suspect]
     Indication: TENDONITIS
     Route: 062
  5. LASIX [Concomitant]
     Indication: FLUID RETENTION
     Dosage: 2X 40MG
     Route: 048
  6. PRILOSEC [Concomitant]
     Indication: GASTRIC DISORDER
     Route: 048
  7. POTASSIUM CHLORIDE [Concomitant]
     Indication: ELECTROLYTE SUBSTITUTION THERAPY
     Route: 048

REACTIONS (3)
  - DRUG INEFFECTIVE [None]
  - GALLBLADDER DISORDER [None]
  - WRONG TECHNIQUE IN DRUG USAGE PROCESS [None]
